FAERS Safety Report 11527100 (Version 1)
Quarter: 2015Q3

REPORT INFORMATION
  Report Type: Spontaneous
  Country: US (occurrence: US)
  Receive Date: 20150903
  Receipt Date: 20150903
  Transmission Date: 20151125
  Serious: No
  Sender: FDA-Public Use
  Company Number: US-ELI_LILLY_AND_COMPANY-US200907002605

PATIENT
  Sex: Female

DRUGS (3)
  1. HUMALOG [Suspect]
     Active Substance: INSULIN LISPRO
     Dosage: UNK, UNK
     Dates: start: 20090710
  2. CHEMOTHERAPEUTICS NOS [Concomitant]
     Active Substance: UNSPECIFIED INGREDIENT
     Indication: NEOPLASM MALIGNANT
  3. LANTUS [Concomitant]
     Active Substance: INSULIN GLARGINE
     Dosage: UNK, EACH EVENING

REACTIONS (3)
  - Neurosis [Unknown]
  - Blood glucose increased [Unknown]
  - Blood glucose decreased [Unknown]
